FAERS Safety Report 6933013-6 (Version None)
Quarter: 2010Q3

REPORT INFORMATION
  Report Type: 
  Country: None (occurrence: None)
  Receive Date: 20100818
  Receipt Date: 20100818
  Transmission Date: 20110219
  Serious: No
  Sender: FDA-Public Use
  Company Number: None

PATIENT
  Sex: Male
  Weight: 73.2559 kg

DRUGS (3)
  1. TESTOSTERONE (TESTIM 1%) [Suspect]
     Indication: ERECTILE DYSFUNCTION
     Dosage: 5GM QDAILY TOP
     Route: 061
     Dates: start: 20050808, end: 20100503
  2. TESTOSTERONE (TESTIM 1%) [Suspect]
     Indication: HYPOGONADISM
     Dosage: 5GM QDAILY TOP
     Route: 061
     Dates: start: 20050808, end: 20100503
  3. TESTOSTERONE (TESTIM 1%) [Suspect]
     Indication: HYPOTHALAMO-PITUITARY DISORDER
     Dosage: 5GM QDAILY TOP
     Route: 061
     Dates: start: 20050808, end: 20100503

REACTIONS (1)
  - PRODUCT GEL FORMATION [None]
